FAERS Safety Report 8192457-8 (Version None)
Quarter: 2012Q1

REPORT INFORMATION
  Report Type: 
  Country: None (occurrence: None)
  Receive Date: 20120308
  Receipt Date: 20120301
  Transmission Date: 20120608
  Serious: No
  Sender: FDA-Public Use
  Company Number: US-BIOGENIDEC-2012BI007680

PATIENT
  Sex: Female

DRUGS (2)
  1. TYSABRI [Suspect]
     Indication: MULTIPLE SCLEROSIS
     Route: 042
     Dates: start: 20070109, end: 20091029
  2. TYSABRI [Suspect]
     Route: 042
     Dates: start: 20100806, end: 20120104

REACTIONS (2)
  - JC VIRUS TEST POSITIVE [None]
  - PHARYNGITIS STREPTOCOCCAL [None]
